FAERS Safety Report 8841978 (Version 1)
Quarter: 2012Q4

REPORT INFORMATION
  Report Type: 
  Country: US (occurrence: US)
  Receive Date: 20121016
  Receipt Date: 20121016
  Transmission Date: 20130627
  Serious: Yes (Other)
  Sender: FDA-Public Use
  Company Number: US-BAYER-2012-105082

PATIENT
  Age: 27 Year
  Sex: Female

DRUGS (3)
  1. BEYAZ [Suspect]
     Indication: CONTRACEPTION
     Dosage: UNK
     Route: 048
     Dates: start: 20120930
  2. ZYRTEC [Concomitant]
     Indication: SEASONAL ALLERGY
  3. ZYRTEC [Concomitant]
     Indication: ALLERGY TO ANIMAL

REACTIONS (5)
  - Allergic respiratory symptom [Recovered/Resolved]
  - Rash pruritic [None]
  - Fatigue [None]
  - Abdominal distension [None]
  - Muscle spasms [None]
